FAERS Safety Report 23597907 (Version 1)
Quarter: 2024Q1

REPORT INFORMATION
  Report Type: Report from Study
  Country: US (occurrence: US)
  Receive Date: 20240305
  Receipt Date: 20240305
  Transmission Date: 20240410
  Serious: Yes (Other)
  Sender: FDA-Public Use
  Company Number: US-ABBVIE-5657448

PATIENT
  Age: 54 Year
  Sex: Female

DRUGS (1)
  1. BOTOX [Suspect]
     Active Substance: ONABOTULINUMTOXINA
     Indication: Hypertonic bladder
     Dosage: TIME INTERVAL: AS NECESSARY
     Route: 065
     Dates: start: 2015, end: 2015

REACTIONS (5)
  - Complication of device removal [Unknown]
  - Urethral disorder [Unknown]
  - COVID-19 [Unknown]
  - Joint injury [Unknown]
  - Urinary retention [Unknown]

NARRATIVE: CASE EVENT DATE: 20160621
